FAERS Safety Report 14744684 (Version 1)
Quarter: 2018Q2

REPORT INFORMATION
  Report Type: Report from Study
  Country: GB (occurrence: GB)
  Receive Date: 20180411
  Receipt Date: 20180411
  Transmission Date: 20180711
  Serious: Yes (Hospitalization, Other)
  Sender: FDA-Public Use
  Company Number: GB-TEVA-2018-GB-880597

PATIENT
  Age: 71 Year
  Sex: Male

DRUGS (3)
  1. TACROLIMUS. [Suspect]
     Active Substance: TACROLIMUS
     Dosage: 2 (UNKNOWN UNIT)
     Route: 065
     Dates: start: 20151230, end: 20170714
  2. PREDNISOLONE. [Concomitant]
     Active Substance: PREDNISOLONE
     Indication: KIDNEY TRANSPLANT REJECTION
     Dosage: 5 (UNIT NOT PROVIDED),
     Route: 065
     Dates: start: 20141031
  3. TACROLIMUS. [Suspect]
     Active Substance: TACROLIMUS
     Indication: RENAL TRANSPLANT
     Dosage: UNKNOWN FREQ.
     Route: 048
     Dates: start: 20140301, end: 20170714

REACTIONS (1)
  - Tonsil cancer [Recovered/Resolved with Sequelae]

NARRATIVE: CASE EVENT DATE: 20170714
